FAERS Safety Report 21290038 (Version 1)
Quarter: 2022Q3

REPORT INFORMATION
  Report Type: Spontaneous
  Country: US (occurrence: US)
  Receive Date: 20220902
  Receipt Date: 20220902
  Transmission Date: 20221026
  Serious: No
  Sender: FDA-Public Use
  Company Number: US-KOWA-22US000677

PATIENT

DRUGS (1)
  1. LIVALO [Suspect]
     Active Substance: PITAVASTATIN CALCIUM
     Indication: Product used for unknown indication
     Dosage: 4 MG
     Dates: start: 202112, end: 20220308

REACTIONS (2)
  - Pain [Unknown]
  - Fibromyalgia [Unknown]
